FAERS Safety Report 11558386 (Version 1)
Quarter: 2015Q3

REPORT INFORMATION
  Report Type: Spontaneous
  Country: US (occurrence: None)
  Receive Date: 20150925
  Receipt Date: 20150925
  Transmission Date: 20151125
  Serious: Yes (Other)
  Sender: FDA-Public Use
  Company Number: None

PATIENT
  Age: 64 Year
  Sex: Female

DRUGS (1)
  1. DESONIDE CREAM USP 0.05% [Suspect]
     Active Substance: DESONIDE

REACTIONS (3)
  - Rash [None]
  - Skin irritation [None]
  - Drug ineffective [None]
